FAERS Safety Report 15948145 (Version 1)
Quarter: 2019Q1

REPORT INFORMATION
  Report Type: Spontaneous
  Country: US (occurrence: US)
  Receive Date: 20190211
  Receipt Date: 20190211
  Transmission Date: 20190417
  Serious: Yes (Other)
  Sender: FDA-Public Use
  Company Number: US-BAYER-2019-028597

PATIENT
  Age: 41 Year
  Sex: Female

DRUGS (5)
  1. CIPROFLOXACIN MONOHYDROCHLORIDE [Suspect]
     Active Substance: CIPROFLOXACIN
  2. MINOCYCLINE [Suspect]
     Active Substance: MINOCYCLINE\MINOCYCLINE HYDROCHLORIDE
     Dosage: UNK
  3. AMIKACIN. [Suspect]
     Active Substance: AMIKACIN
     Route: 048
  4. MINOCYCLINE [Suspect]
     Active Substance: MINOCYCLINE\MINOCYCLINE HYDROCHLORIDE
     Route: 048
  5. CEFTAZIDIME. [Suspect]
     Active Substance: CEFTAZIDIME
     Route: 042

REACTIONS (1)
  - Drug ineffective [None]
